FAERS Safety Report 24044168 (Version 3)
Quarter: 2024Q4

REPORT INFORMATION
  Report Type: Report from Study
  Country: DE (occurrence: DE)
  Receive Date: 20240703
  Receipt Date: 20241212
  Transmission Date: 20250115
  Serious: Yes (Hospitalization, Other)
  Sender: CELLTRION
  Company Number: DE-CELLTRION INC.-2024DE015443

PATIENT

DRUGS (11)
  1. INFLIXIMAB-DYYB [Suspect]
     Active Substance: INFLIXIMAB-DYYB
     Indication: Product used for unknown indication
     Dosage: 320 MG EVERY 5 WEEKS
     Route: 042
     Dates: start: 202309
  2. INFLIXIMAB-DYYB [Suspect]
     Active Substance: INFLIXIMAB-DYYB
     Dosage: 320 MG EVERY 5 WEEKS (VISIT DATE: 17.06.2024)
     Route: 042
  3. METHOTREXATE [Concomitant]
     Active Substance: METHOTREXATE
     Dosage: 15MG (VISIT DATE T3: 11.06.2020)
     Dates: start: 202005
  4. METHOTREXATE [Concomitant]
     Active Substance: METHOTREXATE
     Dosage: 15MG (VISIT DATE T4: 26.11.2020)
  5. METHOTREXATE [Concomitant]
     Active Substance: METHOTREXATE
     Dosage: 15MG (VISIT DATE T5: 11.05.2021)
  6. METHOTREXATE [Concomitant]
     Active Substance: METHOTREXATE
     Dosage: 17.5MG (VISIT DATE T6: 20.01.2022)
  7. METHOTREXATE [Concomitant]
     Active Substance: METHOTREXATE
     Dosage: 17.5MG (VISIT DATE T7: 06.07.2022)
  8. METHOTREXATE [Concomitant]
     Active Substance: METHOTREXATE
     Dosage: 17.5MG (VISIT DATE T8: 05.01.2023)
  9. METHOTREXATE [Concomitant]
     Active Substance: METHOTREXATE
     Dosage: 17.5MG (VISIT DATE T9: 05.07.2023)
     Dates: end: 202308
  10. METHOTREXATE [Concomitant]
     Active Substance: METHOTREXATE
     Dosage: 17.5 UNK
     Dates: end: 202406
  11. BUDESONIDE [Concomitant]
     Active Substance: BUDESONIDE
     Indication: Crohn^s disease

REACTIONS (6)
  - Crohn^s disease [Recovered/Resolved]
  - Intestinal ischaemia [Recovered/Resolved]
  - Ileus [Recovered/Resolved]
  - Circulatory collapse [Recovered/Resolved]
  - Syncope [Recovered/Resolved]
  - Cholecystitis [Recovered/Resolved]

NARRATIVE: CASE EVENT DATE: 20240106
